FAERS Safety Report 6282501-7 (Version None)
Quarter: 2009Q3

REPORT INFORMATION
  Report Type: 
  Country: None (occurrence: None)
  Receive Date: 20090721
  Receipt Date: 20090721
  Transmission Date: 20100115
  Serious: Yes (Disabling)
  Sender: FDA-Public Use
  Company Number: None

PATIENT
  Age: 55 Year
  Sex: Female
  Weight: 63.5036 kg

DRUGS (2)
  1. AVINZA [Suspect]
     Indication: PAIN
     Dosage: 1 CAP BID PO ON AND OFF FOR UP TO SIXTY --
     Route: 048
  2. NORCO [Suspect]
     Indication: PAIN
     Dosage: 1-2 TABS Q 6 HOURS PO UP TO 6 YEARS
     Route: 048

REACTIONS (7)
  - DEPENDENCE [None]
  - LEGAL PROBLEM [None]
  - LOSS OF EMPLOYMENT [None]
  - MENTAL DISORDER [None]
  - ROAD TRAFFIC ACCIDENT [None]
  - THINKING ABNORMAL [None]
  - TREATMENT NONCOMPLIANCE [None]
